FAERS Safety Report 13084290 (Version 1)
Quarter: 2017Q1

REPORT INFORMATION
  Report Type: Spontaneous
  Country: US (occurrence: US)
  Receive Date: 20170101
  Receipt Date: 20170101
  Transmission Date: 20170428
  Serious: Yes (Disabling, Other)
  Sender: FDA-Public Use
  Company Number: None

PATIENT
  Age: 69 Year
  Sex: Male
  Weight: 60.75 kg

DRUGS (3)
  1. TEGRETOL [Concomitant]
     Active Substance: CARBAMAZEPINE
  2. MORPHINE [Concomitant]
     Active Substance: MORPHINE
  3. PRAVASTATIN. [Suspect]
     Active Substance: PRAVASTATIN
     Indication: BLOOD CHOLESTEROL ABNORMAL
     Dosage: ?          QUANTITY:1 TABLET(S);?
     Route: 048
     Dates: start: 20161012, end: 20161116

REACTIONS (7)
  - Condition aggravated [None]
  - Tendon rupture [None]
  - Muscle spasms [None]
  - Fall [None]
  - Arthralgia [None]
  - Bone pain [None]
  - Mobility decreased [None]

NARRATIVE: CASE EVENT DATE: 20161208
